FAERS Safety Report 23467921 (Version 1)
Quarter: 2024Q1

REPORT INFORMATION
  Report Type: Spontaneous
  Country: JP (occurrence: JP)
  Receive Date: 20240201
  Receipt Date: 20240201
  Transmission Date: 20240409
  Serious: Yes (Death)
  Sender: FDA-Public Use
  Company Number: JP-ELI_LILLY_AND_COMPANY-JP202401017299

PATIENT
  Age: 91 Year
  Sex: Female
  Weight: 36 kg

DRUGS (11)
  1. OLUMIANT [Suspect]
     Active Substance: BARICITINIB
     Indication: COVID-19 pneumonia
     Dosage: 2 MG, DAILY
     Route: 048
     Dates: start: 20220716, end: 20220722
  2. REMDESIVIR [Concomitant]
     Active Substance: REMDESIVIR
     Indication: COVID-19 pneumonia
     Dosage: 200 MG, SINGLE
     Route: 065
     Dates: start: 20220716, end: 20220716
  3. REMDESIVIR [Concomitant]
     Active Substance: REMDESIVIR
     Dosage: 100 MG, UNKNOWN
     Route: 065
     Dates: start: 20220717, end: 20220720
  4. TULOBUTEROL [Concomitant]
     Active Substance: TULOBUTEROL
     Indication: Asthma
  5. LANSOPRAZOLE [Concomitant]
     Active Substance: LANSOPRAZOLE
     Indication: Prophylaxis
  6. ESZOPICLONE [Concomitant]
     Active Substance: ESZOPICLONE
     Indication: Insomnia
  7. BISOPROLOL [Concomitant]
     Active Substance: BISOPROLOL\BISOPROLOL FUMARATE
     Indication: Cardiovascular disorder
  8. SPIRONOLACTONE [Concomitant]
     Active Substance: SPIRONOLACTONE
     Indication: Cardiovascular disorder
  9. FUROSEMIDE [Concomitant]
     Active Substance: FUROSEMIDE
     Indication: Cardiovascular disorder
  10. WARFARIN [Concomitant]
     Active Substance: WARFARIN
     Indication: Cardiovascular disorder
     Dosage: 1 MG, DAILY
     Dates: start: 20220727
  11. WARFARIN [Concomitant]
     Active Substance: WARFARIN
     Indication: Prophylaxis

REACTIONS (1)
  - Intestinal haemorrhage [Fatal]

NARRATIVE: CASE EVENT DATE: 20220815
